FAERS Safety Report 19436760 (Version 4)
Quarter: 2021Q3

REPORT INFORMATION
  Report Type: Spontaneous
  Country: DE (occurrence: DE)
  Receive Date: 20210618
  Receipt Date: 20210915
  Transmission Date: 20211014
  Serious: Yes (Other)
  Sender: FDA-Public Use
  Company Number: DE-BAUSCH-BL-2021-021540

PATIENT
  Age: 72 Year
  Sex: Male

DRUGS (4)
  1. KYNTHEUM [Suspect]
     Active Substance: BRODALUMAB
     Indication: PSORIASIS
     Dosage: ONCE IN 2 WEEKS
     Route: 065
     Dates: start: 20210127
  2. L?THYROXIN [Concomitant]
     Active Substance: LEVOTHYROXINE SODIUM
     Indication: THYROID MASS
     Dosage: SINCE YEARS
     Route: 048
  3. RAMIPRIL. [Concomitant]
     Active Substance: RAMIPRIL
     Indication: HYPERTENSION
     Dosage: SINCE YEARS
     Route: 048
  4. TAFLOTAN SINE [Concomitant]
     Active Substance: TAFLUPROST
     Indication: GLAUCOMA

REACTIONS (3)
  - Cystoid macular oedema [Recovered/Resolved]
  - Eye pain [Recovered/Resolved]
  - Eye inflammation [Recovered/Resolved]

NARRATIVE: CASE EVENT DATE: 20210408
